FAERS Safety Report 6914043-7 (Version None)
Quarter: 2010Q3

REPORT INFORMATION
  Report Type: 
  Country: None (occurrence: None)
  Receive Date: 20100809
  Receipt Date: 20100729
  Transmission Date: 20110219
  Serious: Yes (Hospitalization)
  Sender: FDA-Public Use
  Company Number: PHHO2008ES03747

PATIENT
  Sex: Male
  Weight: 88 kg

DRUGS (5)
  1. ALISKIREN ALI+TAB [Suspect]
     Indication: ACUTE CORONARY SYNDROME
     Dosage: 75MG (VISIT 2)
     Route: 048
     Dates: start: 20080314
  2. ASPIRIN [Concomitant]
  3. CLOPIDOGREL [Concomitant]
  4. ATORVASTATIN [Concomitant]
  5. ATENOLOL [Concomitant]

REACTIONS (4)
  - CHEST PAIN [None]
  - MYOCARDIAL INFARCTION [None]
  - PERICARDITIS [None]
  - PYREXIA [None]
